FAERS Safety Report 8134015-7 (Version None)
Quarter: 2012Q1

REPORT INFORMATION
  Report Type: 
  Country: None (occurrence: None)
  Receive Date: 20120213
  Receipt Date: 20120203
  Transmission Date: 20120608
  Serious: Yes (Other)
  Sender: FDA-Public Use
  Company Number: AR-AMGEN-ARGSP2012008135

PATIENT
  Age: 49 Year
  Sex: Female

DRUGS (3)
  1. ENBREL [Suspect]
     Dosage: UNK
     Dates: start: 20120101
  2. ENBREL [Suspect]
     Indication: RHEUMATOID ARTHRITIS
     Dosage: 50 MG, WEEKLY
     Route: 058
     Dates: start: 20101227
  3. METHOTREXATE [Concomitant]
     Dosage: UNK
     Dates: end: 20110501

REACTIONS (2)
  - PHARYNGITIS [None]
  - PNEUMONITIS [None]
